FAERS Safety Report 7362552-1 (Version None)
Quarter: 2011Q1

REPORT INFORMATION
  Report Type: 
  Country: None (occurrence: None)
  Receive Date: 20110318
  Receipt Date: 20110316
  Transmission Date: 20110831
  Serious: Yes (Hospitalization)
  Sender: FDA-Public Use
  Company Number: US-AMGEN-USASP2011014738

PATIENT
  Age: 91 Year
  Sex: Male

DRUGS (17)
  1. RITUXIMAB [Concomitant]
  2. ALLOPURINOL [Concomitant]
  3. AMITRIPTYLINE HCL [Concomitant]
  4. COMPAZINE [Concomitant]
  5. IMDUR [Concomitant]
  6. LOPID [Concomitant]
  7. VIT B12 [Concomitant]
  8. BACTRIM DS [Concomitant]
  9. NPLATE [Suspect]
     Indication: IDIOPATHIC THROMBOCYTOPENIC PURPURA
     Dates: start: 20100715, end: 20110310
  10. NITROGLYCERIN [Concomitant]
  11. CHLORAMBUCIL [Concomitant]
  12. FOLIC ACID [Concomitant]
  13. METOPROLOL SUCCINATE [Concomitant]
  14. CORTICOSTEROIDS [Concomitant]
  15. NIACIN [Concomitant]
  16. IVIGLOB-EX [Concomitant]
  17. PRILOSEC [Concomitant]

REACTIONS (2)
  - PULMONARY EMBOLISM [None]
  - DEEP VEIN THROMBOSIS [None]
